FAERS Safety Report 6730402-X (Version None)
Quarter: 2010Q2

REPORT INFORMATION
  Report Type: 
  Country: None (occurrence: None)
  Receive Date: 20100518
  Receipt Date: 20100512
  Transmission Date: 20101027
  Serious: Yes (Other)
  Sender: FDA-Public Use
  Company Number: A0859277A

PATIENT
  Age: 68 Year
  Sex: Male

DRUGS (4)
  1. AVODART [Suspect]
     Dosage: .5MG PER DAY
     Route: 048
     Dates: start: 20100101
  2. NORVASC [Concomitant]
     Indication: HYPERTENSION
     Dosage: 2.5MG UNKNOWN
     Route: 065
  3. CRESTOR [Concomitant]
     Dosage: 20MG PER DAY
     Route: 065
  4. LOSEC I.V. [Concomitant]
     Dosage: 20MG PER DAY
     Route: 065

REACTIONS (2)
  - COLITIS ULCERATIVE [None]
  - INFLAMMATORY BOWEL DISEASE [None]
